FAERS Safety Report 23467940 (Version 3)
Quarter: 2024Q3

REPORT INFORMATION
  Report Type: Report from Study
  Country: LT (occurrence: LT)
  Receive Date: 20240201
  Receipt Date: 20240816
  Transmission Date: 20241017
  Serious: Yes (Hospitalization)
  Sender: VERITY PHARMACEUTICALS
  Company Number: LT-VER-202400002

PATIENT
  Age: 44 Year
  Sex: Male
  Weight: 84 kg

DRUGS (3)
  1. TRIPTORELIN [Suspect]
     Active Substance: TRIPTORELIN
     Indication: Prostate cancer
     Dosage: LEFT LATERALITY ABDOMINAL REGION
     Route: 058
     Dates: start: 20221130
  2. IBUPROFEN [Concomitant]
     Active Substance: IBUPROFEN
     Indication: Influenza
     Dosage: 200 MG ONCE
     Route: 048
     Dates: start: 20221215, end: 20221215
  3. ACETAMINOPHEN [Concomitant]
     Active Substance: ACETAMINOPHEN
     Indication: Influenza
     Dosage: 500 MG ONCE
     Route: 048
     Dates: start: 20221214, end: 20221214

REACTIONS (1)
  - Appendicitis [Recovered/Resolved]

NARRATIVE: CASE EVENT DATE: 20230410
